FAERS Safety Report 7366199-2 (Version None)
Quarter: 2011Q1

REPORT INFORMATION
  Report Type: 
  Country: None (occurrence: None)
  Receive Date: 20110322
  Receipt Date: 20110308
  Transmission Date: 20110831
  Serious: Yes (Hospitalization)
  Sender: FDA-Public Use
  Company Number: US-JNJFOC-20091202578

PATIENT
  Sex: Female
  Weight: 45.8 kg

DRUGS (2)
  1. REMICADE [Suspect]
     Indication: INFLAMMATORY BOWEL DISEASE
     Dosage: TOTAL DOSES 4
     Route: 042
     Dates: start: 20090828
  2. REMICADE [Suspect]
     Route: 042
     Dates: start: 20090828

REACTIONS (1)
  - ENTEROSTOMY [None]
